FAERS Safety Report 16005315 (Version 5)
Quarter: 2019Q2

REPORT INFORMATION
  Report Type: Spontaneous
  Country: US (occurrence: US)
  Receive Date: 20190226
  Receipt Date: 20190426
  Transmission Date: 20190711
  Serious: No
  Sender: FDA-Public Use
  Company Number: US-PFIZER INC-2019081026

PATIENT
  Age: 75 Year
  Sex: Female

DRUGS (2)
  1. PREDNISONE. [Concomitant]
     Active Substance: PREDNISONE
     Dosage: UNK
  2. XELJANZ [Suspect]
     Active Substance: TOFACITINIB CITRATE
     Indication: COLITIS ULCERATIVE
     Dosage: 10 MG, 2X/DAY
     Route: 048

REACTIONS (4)
  - Flatulence [Unknown]
  - Drug ineffective [Not Recovered/Not Resolved]
  - Nasopharyngitis [Unknown]
  - Myalgia [Unknown]

NARRATIVE: CASE EVENT DATE: 20190307
